FAERS Safety Report 10395577 (Version 1)
Quarter: 2014Q1

REPORT INFORMATION
  Report Type: Spontaneous
  Country: US (occurrence: None)
  Receive Date: 20130107
  Receipt Date: 20130107
  Transmission Date: 20141002
  Serious: No
  Sender: FDA-Public Use
  Company Number: PHEH2012US016881

PATIENT
  Age: 45 Year
  Sex: Female

DRUGS (2)
  1. GILENYA (FINGOLIMOD) CAPSULE, 0.5MG [Suspect]
     Indication: MULTIPLE SCLEROSIS
     Route: 048
     Dates: start: 20120723
  2. VITAMIN D3 (COLECALCIFEROL) CAPSULE [Concomitant]

REACTIONS (4)
  - Blood sodium decreased [None]
  - White blood cell disorder [None]
  - Diarrhoea [None]
  - Lymphocyte count decreased [None]
